FAERS Safety Report 23960624 (Version 2)
Quarter: 2024Q2

REPORT INFORMATION
  Report Type: Spontaneous
  Country: BG (occurrence: BG)
  Receive Date: 20240611
  Receipt Date: 20240618
  Transmission Date: 20240716
  Serious: Yes (Life-Threatening, Hospitalization, Disabling, Other)
  Sender: FDA-Public Use
  Company Number: BG-Accord-428496

PATIENT
  Age: 76 Year
  Sex: Male

DRUGS (8)
  1. FUROSEMIDE [Suspect]
     Active Substance: FUROSEMIDE
     Indication: Product used for unknown indication
     Dosage: TWICE DAILY IN THE MORNING FOR THE PAST 8 MONTHS
  2. APIXABAN [Concomitant]
     Active Substance: APIXABAN
     Indication: Product used for unknown indication
  3. SPIRONOLACTONE [Concomitant]
     Active Substance: SPIRONOLACTONE
     Indication: Product used for unknown indication
     Dosage: TWICE DAILY FOR THE PAST 8 MONTHS
  4. PREGABALIN [Concomitant]
     Active Substance: PREGABALIN
     Indication: Product used for unknown indication
     Dosage: ONCE DAILY FOR THE PAST 3 MONTHS
  5. PANTOPRAZOLE [Concomitant]
     Active Substance: PANTOPRAZOLE
     Indication: Product used for unknown indication
     Dosage: ONCE DAILY FOR THE PAST 8 MONTHS
  6. AMIODARONE [Concomitant]
     Active Substance: AMIODARONE
     Indication: Product used for unknown indication
     Dosage: FOR THE PAST 8 MONTHS PRIOR TO THE CONSULTATION
  7. BENFOTIAMINE, HYDROXOCOBALAMIN, PYRIDOXINE [Concomitant]
     Indication: Product used for unknown indication
     Dosage: FOR THE PAST 3 MONTHS
  8. PASSIFLORA [Concomitant]
     Dosage: TWICE DAILY FOR THE PAST 3 MONTHS

REACTIONS (1)
  - Malignant melanoma [Recovering/Resolving]
